FAERS Safety Report 17881226 (Version 4)
Quarter: 2020Q3

REPORT INFORMATION
  Report Type: Spontaneous
  Country: US (occurrence: US)
  Receive Date: 20200610
  Receipt Date: 20200731
  Transmission Date: 20201103
  Serious: Yes (Other)
  Sender: FDA-Public Use
  Company Number: US-GILEAD-2020-0470048

PATIENT
  Age: 69 Year
  Sex: Male

DRUGS (19)
  1. NOREPINEPHRINE. [Concomitant]
     Active Substance: NOREPINEPHRINE
  2. INSULIN GLARGINE [Concomitant]
     Active Substance: INSULIN GLARGINE
  3. CONVALESCENT PLASMA [Concomitant]
     Active Substance: HUMAN PLASMA
  4. INSULIN ASPART [Concomitant]
     Active Substance: INSULIN ASPART
  5. REMDESIVIR. [Suspect]
     Active Substance: REMDESIVIR
     Dosage: 100 MG, QD
     Route: 042
     Dates: start: 20200523, end: 20200526
  6. HYDROMORPHONE [Concomitant]
     Active Substance: HYDROMORPHONE
  7. LISINOPRIL. [Concomitant]
     Active Substance: LISINOPRIL
  8. REMDESIVIR. [Suspect]
     Active Substance: REMDESIVIR
     Indication: COVID-19
     Dosage: 200 MG, QD
     Route: 042
     Dates: start: 20200522, end: 20200522
  9. MELATONIN [Concomitant]
     Active Substance: MELATONIN
  10. INSULIN [Concomitant]
     Active Substance: INSULIN NOS
  11. DICLOFENAC [Concomitant]
     Active Substance: DICLOFENAC
  12. PROPOFOL. [Concomitant]
     Active Substance: PROPOFOL
  13. LINEZOLID. [Concomitant]
     Active Substance: LINEZOLID
  14. FAMOTIDINE. [Concomitant]
     Active Substance: FAMOTIDINE
  15. INSULIN LISPRO [Concomitant]
     Active Substance: INSULIN LISPRO
  16. MEROPENEM. [Concomitant]
     Active Substance: MEROPENEM
  17. PRISMASOL [Concomitant]
     Active Substance: DEXTROSE\LACTIC ACID\MAGNESIUM CL\POTASSIUM CL\SODIUM BICARBONATE\SODIUM CL
  18. LEVOTHYROXINE. [Concomitant]
     Active Substance: LEVOTHYROXINE
  19. HEPARIN [Concomitant]
     Active Substance: HEPARIN SODIUM

REACTIONS (1)
  - Acute kidney injury [Not Recovered/Not Resolved]

NARRATIVE: CASE EVENT DATE: 20200527
